FAERS Safety Report 20511920 (Version 1)
Quarter: 2022Q1

REPORT INFORMATION
  Report Type: Spontaneous
  Country: US (occurrence: US)
  Receive Date: 20220224
  Receipt Date: 20220224
  Transmission Date: 20220423
  Serious: Yes (Other)
  Sender: FDA-Public Use
  Company Number: US-GLAXOSMITHKLINE-US2022GSK032501

PATIENT
  Sex: Female

DRUGS (2)
  1. ZANTAC [Suspect]
     Active Substance: RANITIDINE HYDROCHLORIDE
     Indication: Irritable bowel syndrome
     Dosage: UNK UNK, QD
     Route: 065
     Dates: start: 199601, end: 200612
  2. ZANTAC [Suspect]
     Active Substance: RANITIDINE HYDROCHLORIDE
     Indication: Irritable bowel syndrome
     Dosage: UNK UNK, QD
     Route: 065
     Dates: start: 199601, end: 200612

REACTIONS (1)
  - Breast cancer [Unknown]
